FAERS Safety Report 6263104-7 (Version None)
Quarter: 2009Q3

REPORT INFORMATION
  Report Type: 
  Country: None (occurrence: None)
  Receive Date: 20090708
  Receipt Date: 20090708
  Transmission Date: 20100115
  Serious: Yes (Other)
  Sender: FDA-Public Use
  Company Number: None

PATIENT
  Sex: Male
  Weight: 69.8539 kg

DRUGS (1)
  1. FLONASE [Suspect]
     Indication: NASOPHARYNGITIS
     Dosage: 1-2 SPRAYS 1-2 X DAILY NASAL
     Route: 045
     Dates: start: 19990101

REACTIONS (3)
  - ANOSMIA [None]
  - HYPOSMIA [None]
  - PAROSMIA [None]
